FAERS Safety Report 8188224-1 (Version None)
Quarter: 2012Q1

REPORT INFORMATION
  Report Type: 
  Country: None (occurrence: None)
  Receive Date: 20120221
  Receipt Date: 20100210
  Transmission Date: 20120608
  Serious: Yes (Other)
  Sender: FDA-Public Use
  Company Number: PHHY2010US89941

PATIENT
  Age: 63 Year
  Sex: Male

DRUGS (1)
  1. TOBI [Suspect]
     Indication: CYSTIC FIBROSIS
     Dosage: 300 MG, 1 VIAL BID 28 DAYS ON 28 DAYS OFF, INHALATION
     Route: 055

REACTIONS (2)
  - DEAFNESS [None]
  - TINNITUS [None]
